FAERS Safety Report 4354719-1 (Version None)
Quarter: 2004Q2

REPORT INFORMATION
  Report Type: 
  Country: None (occurrence: None)
  Receive Date: 20040507
  Receipt Date: 20040405
  Transmission Date: 20050107
  Serious: Yes (Death, Hospitalization)
  Sender: FDA-Public Use
  Company Number: BE-BRISTOL-MYERS SQUIBB COMPANY-12554580

PATIENT
  Age: 79 Year
  Sex: Female
  Weight: 52 kg

DRUGS (4)
  1. CEFEPIME FOR INJ [Suspect]
     Indication: SEPSIS
     Route: 042
     Dates: start: 20040322, end: 20040323
  2. SERTRALINE HCL [Concomitant]
     Route: 048
     Dates: start: 20040309, end: 20040323
  3. SOLIAN [Concomitant]
     Route: 048
     Dates: start: 20040315, end: 20040323
  4. LORAZEPAM [Concomitant]
     Route: 048
     Dates: start: 20040315, end: 20040420

REACTIONS (3)
  - COMA [None]
  - NEUROLOGICAL EXAMINATION ABNORMAL [None]
  - NEUROTOXICITY [None]
